FAERS Safety Report 4414047-2 (Version None)
Quarter: 2004Q3

REPORT INFORMATION
  Report Type: 
  Country: None (occurrence: None)
  Receive Date: 20040803
  Receipt Date: 20040721
  Transmission Date: 20050211
  Serious: Yes (Hospitalization)
  Sender: FDA-Public Use
  Company Number: JP-GLAXOSMITHKLINE-B0340456A

PATIENT
  Age: 47 Year
  Sex: Male

DRUGS (12)
  1. LAMIVUDINE [Suspect]
     Indication: ACQUIRED IMMUNODEFICIENCY SYNDROME
     Route: 048
     Dates: start: 20031022
  2. STAVUDINE [Suspect]
     Indication: ACQUIRED IMMUNODEFICIENCY SYNDROME
     Dosage: 40MG PER DAY
     Route: 048
     Dates: start: 20031028
  3. KALETRA [Suspect]
     Indication: ACQUIRED IMMUNODEFICIENCY SYNDROME
     Route: 048
     Dates: start: 20031028
  4. ZIDOVUDINE [Concomitant]
     Indication: ACQUIRED IMMUNODEFICIENCY SYNDROME
     Route: 048
     Dates: start: 20031022, end: 20031028
  5. INDINAVIR SULFATE [Concomitant]
     Indication: ACQUIRED IMMUNODEFICIENCY SYNDROME
     Dosage: 1600MG PER DAY
     Route: 048
     Dates: start: 20031022, end: 20031028
  6. RITONAVIR [Concomitant]
     Indication: ACQUIRED IMMUNODEFICIENCY SYNDROME
     Dosage: 200MG PER DAY
     Route: 048
     Dates: start: 20031022, end: 20031028
  7. DENOSINE (GANCICLOVIR SODIUM) [Concomitant]
     Indication: CYTOMEGALOVIRUS INFECTION
     Route: 042
     Dates: start: 20031017, end: 20031202
  8. LEVOFLOXACIN [Concomitant]
     Dosage: 100MG THREE TIMES PER DAY
     Route: 065
     Dates: start: 20031019, end: 20031111
  9. CEFOZOPRAN HYDROCHLORIDE [Concomitant]
     Dosage: 1000MG TWICE PER DAY
     Route: 042
     Dates: start: 20031111, end: 20031121
  10. MICAFUNGIN [Concomitant]
     Dosage: 150MG PER DAY
     Route: 042
     Dates: start: 20031111, end: 20031117
  11. MINOMYCIN [Concomitant]
     Dosage: 100MG TWICE PER DAY
     Route: 065
     Dates: start: 20031111, end: 20031114
  12. CO-TRIMOXAZOLE [Concomitant]
     Route: 048
     Dates: start: 20031017

REACTIONS (7)
  - CHEST X-RAY ABNORMAL [None]
  - IMMUNE RECONSTITUTION SYNDROME [None]
  - LUNG NEOPLASM [None]
  - MYCOBACTERIUM AVIUM COMPLEX INFECTION [None]
  - PLEURAL EFFUSION [None]
  - PNEUMONIA [None]
  - PYREXIA [None]
